FAERS Safety Report 23403495 (Version 3)
Quarter: 2024Q1

REPORT INFORMATION
  Report Type: Spontaneous
  Country: AR (occurrence: AR)
  Receive Date: 20240116
  Receipt Date: 20240301
  Transmission Date: 20240409
  Serious: Yes (Other)
  Sender: FDA-Public Use
  Company Number: AR-Harrow Eye-2151271

PATIENT
  Age: 73 Year
  Sex: Female

DRUGS (3)
  1. NEVANAC [Suspect]
     Active Substance: NEPAFENAC
     Route: 047
  2. CARVIDOL [Concomitant]
  3. BUSCAPINA [Concomitant]

REACTIONS (4)
  - Cataract [Unknown]
  - Lacrimation increased [Unknown]
  - Vision blurred [Unknown]
  - Blindness unilateral [Unknown]
